FAERS Safety Report 18701152 (Version 2)
Quarter: 2021Q1

REPORT INFORMATION
  Report Type: Report from Study
  Country: US (occurrence: US)
  Receive Date: 20210105
  Receipt Date: 20210212
  Transmission Date: 20210419
  Serious: No
  Sender: FDA-Public Use
  Company Number: US-TAKEDA-2021TUS000187

PATIENT
  Sex: Female
  Weight: 202 kg

DRUGS (12)
  1. HUMAN NORMAL IMMUNOGLOBULIN [Suspect]
     Active Substance: HUMAN IMMUNOGLOBULIN G
     Indication: RHEUMATOID ARTHRITIS
     Dosage: 90 GRAM
     Route: 042
     Dates: start: 20190116
  2. ATENOLOL. [Concomitant]
     Active Substance: ATENOLOL
  3. ACIPHEX [Concomitant]
     Active Substance: RABEPRAZOLE SODIUM
  4. SINGULAIR [Concomitant]
     Active Substance: MONTELUKAST SODIUM
  5. PREDNISONE. [Concomitant]
     Active Substance: PREDNISONE
  6. MULTIVITAMINS [VITAMINS NOS] [Concomitant]
     Active Substance: VITAMINS
  7. IRON [Concomitant]
     Active Substance: IRON
  8. LASIX [Concomitant]
     Active Substance: FUROSEMIDE
  9. ZANTAC [Concomitant]
     Active Substance: RANITIDINE HYDROCHLORIDE
  10. LEXAPRO [Concomitant]
     Active Substance: ESCITALOPRAM OXALATE
  11. VITAMIN D2 [Concomitant]
     Active Substance: ERGOCALCIFEROL
  12. NIFEDIPINE. [Concomitant]
     Active Substance: NIFEDIPINE

REACTIONS (3)
  - Product dose omission issue [Unknown]
  - No adverse event [Unknown]
  - Off label use [Unknown]
